FAERS Safety Report 22060164 (Version 2)
Quarter: 2023Q1

REPORT INFORMATION
  Report Type: Spontaneous
  Country: US (occurrence: US)
  Receive Date: 20230303
  Receipt Date: 20230329
  Transmission Date: 20230418
  Serious: No
  Sender: FDA-Public Use
  Company Number: US-MYLANLABS-2023M1020378

PATIENT
  Sex: Female
  Weight: 79 kg

DRUGS (1)
  1. ESTRADIOL [Suspect]
     Active Substance: ESTRADIOL
     Indication: Therapeutic procedure
     Dosage: 1 GRAM, BIWEEKLY (1 GRAM TWO TIMES A WEEK)
     Route: 067
     Dates: start: 201604

REACTIONS (3)
  - Bacterial infection [Unknown]
  - Product cleaning inadequate [Unknown]
  - Device dispensing error [Unknown]
